FAERS Safety Report 15794888 (Version 2)
Quarter: 2019Q1

REPORT INFORMATION
  Report Type: Report from Study
  Country: CA (occurrence: CA)
  Receive Date: 20190107
  Receipt Date: 20190116
  Transmission Date: 20190417
  Serious: Yes (Other)
  Sender: FDA-Public Use
  Company Number: CA-TAKEDA-2019TUS000229

PATIENT
  Age: 29 Year
  Sex: Female

DRUGS (5)
  1. PREDNISONE. [Concomitant]
     Active Substance: PREDNISONE
     Dosage: UNK
     Dates: start: 20171006
  2. SALOFALK                           /00000301/ [Concomitant]
     Active Substance: MESALAMINE
     Dosage: UNK
     Dates: start: 20160101
  3. VEDOLIZUMAB [Suspect]
     Active Substance: VEDOLIZUMAB
     Indication: COLITIS ULCERATIVE
     Dosage: 300 MG, UNK
     Route: 042
     Dates: start: 20171019
  4. CLOVAX [Concomitant]
     Dosage: UNK
  5. DOVOBET [Concomitant]
     Active Substance: BETAMETHASONE\CALCIPOTRIENE
     Indication: PSORIASIS
     Dosage: UNK

REACTIONS (1)
  - Foot operation [Recovering/Resolving]

NARRATIVE: CASE EVENT DATE: 201812
